FAERS Safety Report 4352867-3 (Version None)
Quarter: 2004Q2

REPORT INFORMATION
  Report Type: 
  Country: None (occurrence: None)
  Receive Date: 20040429
  Receipt Date: 20040419
  Transmission Date: 20050107
  Serious: Yes (Other)
  Sender: FDA-Public Use
  Company Number: US-JNJFOC-20040404183

PATIENT
  Age: 60 Year
  Sex: Female
  Weight: 83.0083 kg

DRUGS (10)
  1. REMICADE [Suspect]
     Indication: RHEUMATOID ARTHRITIS
     Dosage: SEE IMAGE
     Route: 042
     Dates: start: 20010312
  2. REMICADE [Suspect]
     Indication: RHEUMATOID ARTHRITIS
     Dosage: SEE IMAGE
     Route: 042
     Dates: start: 20040219
  3. METHOTREXATE SODIUM [Concomitant]
  4. FOLIC ACID [Concomitant]
  5. ZESTORETIC [Concomitant]
  6. MULTIVITE (KAPSOVIT) [Concomitant]
  7. CALTRATE (CALCIUM CARBONATE) [Concomitant]
  8. VITAMIN E [Concomitant]
  9. CELEBREX [Concomitant]
  10. ASPIRIN [Concomitant]

REACTIONS (4)
  - BLOOD IRON DECREASED [None]
  - HAEMOGLOBIN DECREASED [None]
  - RENAL CELL CARCINOMA STAGE UNSPECIFIED [None]
  - SERUM FERRITIN INCREASED [None]
